FAERS Safety Report 8228405 (Version 7)
Quarter: 2013Q1

REPORT INFORMATION
  Report Type: Spontaneous
  Country: US (occurrence: US)
  Receive Date: 20111104
  Receipt Date: 20130308
  Transmission Date: 20140127
  Serious: Yes (Hospitalization, Other)
  Sender: FDA-Public Use
  Company Number: US-ASTRAZENECA-2011SE45245

PATIENT
  Age: 77 Year
  Sex: Female

DRUGS (4)
  1. NEXIUM [Suspect]
     Indication: COLITIS ULCERATIVE
     Route: 048
  2. NEXIUM [Suspect]
     Indication: HIATUS HERNIA
     Route: 048
  3. NEXIUM [Suspect]
     Indication: GASTROOESOPHAGEAL REFLUX DISEASE
     Route: 048
  4. NEXIUM [Suspect]
     Indication: DYSPEPSIA
     Route: 048

REACTIONS (10)
  - Gastric haemorrhage [Unknown]
  - Cauda equina syndrome [Recovering/Resolving]
  - Pneumonia [Unknown]
  - Urinary tract infection fungal [Unknown]
  - Bladder disorder [Unknown]
  - Haemorrhoids [Unknown]
  - Asthenia [Unknown]
  - Neuralgia [Unknown]
  - Hernia [Unknown]
  - Influenza [Unknown]
